FAERS Safety Report 6801453-1 (Version None)
Quarter: 2010Q2

REPORT INFORMATION
  Report Type: 
  Country: None (occurrence: None)
  Receive Date: 20100629
  Receipt Date: 20100616
  Transmission Date: 20101027
  Serious: Yes (Death)
  Sender: FDA-Public Use
  Company Number: JP-ROCHE-710878

PATIENT
  Age: 50 Year
  Sex: Female

DRUGS (4)
  1. CELLCEPT [Suspect]
     Indication: ACUTE GRAFT VERSUS HOST DISEASE
     Route: 048
  2. CYCLOSPORINE [Concomitant]
     Route: 048
  3. METILPREDNISOLONE [Concomitant]
  4. ADRENAL CORTICAL EXTRACT [Concomitant]
     Route: 041

REACTIONS (1)
  - CYTOMEGALOVIRUS TEST POSITIVE [None]
